FAERS Safety Report 10798446 (Version 1)
Quarter: 2015Q1

REPORT INFORMATION
  Report Type: Report from Study
  Country: US (occurrence: US)
  Receive Date: 20150216
  Receipt Date: 20150216
  Transmission Date: 20150721
  Serious: Yes (Death, Life-Threatening, Other)
  Sender: FDA-Public Use
  Company Number: US-ASTELLAS-2015US004743

PATIENT
  Age: 80 Year
  Sex: Male

DRUGS (10)
  1. ERLOTINIB [Suspect]
     Active Substance: ERLOTINIB
     Indication: PANCREATIC CARCINOMA METASTATIC
     Route: 048
  2. ERLOTINIB [Suspect]
     Active Substance: ERLOTINIB
     Indication: METASTASES TO LIVER
  3. MEGACE [Concomitant]
     Active Substance: MEGESTROL ACETATE
     Indication: PRODUCT USED FOR UNKNOWN INDICATION
     Dosage: UNK UNK, UNKNOWN FREQ.
     Route: 065
  4. SPIRONOLACTONE. [Concomitant]
     Active Substance: SPIRONOLACTONE
     Indication: PRODUCT USED FOR UNKNOWN INDICATION
     Route: 048
  5. ERLOTINIB [Suspect]
     Active Substance: ERLOTINIB
     Indication: LUNG CARCINOMA CELL TYPE UNSPECIFIED STAGE 0
  6. LOVENOX [Concomitant]
     Active Substance: ENOXAPARIN SODIUM
     Indication: PRODUCT USED FOR UNKNOWN INDICATION
     Dosage: 90 MG. TWICE DAILY
     Route: 058
  7. VITAMIN D                          /00107901/ [Concomitant]
     Active Substance: ERGOCALCIFEROL
     Indication: PRODUCT USED FOR UNKNOWN INDICATION
     Dosage: UNK UNK, UNKNOWN FREQ.
     Route: 065
  8. VICODIN [Concomitant]
     Active Substance: ACETAMINOPHEN\HYDROCODONE BITARTRATE
     Indication: PRODUCT USED FOR UNKNOWN INDICATION
     Dosage: 5/500, THRICE DAILY
     Route: 048
  9. HYDROCHLOROTHIAZIDE. [Concomitant]
     Active Substance: HYDROCHLOROTHIAZIDE
     Indication: PRODUCT USED FOR UNKNOWN INDICATION
     Route: 048
  10. GEMCITABINE [Concomitant]
     Active Substance: GEMCITABINE\GEMCITABINE HYDROCHLORIDE
     Indication: PRODUCT USED FOR UNKNOWN INDICATION
     Dosage: UNK UNK, UNKNOWN FREQ.
     Route: 065

REACTIONS (13)
  - Rash erythematous [Unknown]
  - Paronychia [Unknown]
  - Malignant neoplasm progression [Unknown]
  - Muscle atrophy [Unknown]
  - Neutropenia [Unknown]
  - Rash [Unknown]
  - Breath sounds abnormal [Unknown]
  - Death [Fatal]
  - Leukopenia [Unknown]
  - Ascites [Unknown]
  - Cachexia [Unknown]
  - Telangiectasia [Unknown]
  - Muscular weakness [Unknown]

NARRATIVE: CASE EVENT DATE: 20100215
